FAERS Safety Report 9717071 (Version 2)
Quarter: 2015Q3

REPORT INFORMATION
  Report Type: Spontaneous
  Country: US (occurrence: US)
  Receive Date: 20131127
  Receipt Date: 20150804
  Transmission Date: 20151125
  Serious: No
  Sender: FDA-Public Use
  Company Number: US-GILEAD-2009-0020797

PATIENT
  Age: 59 Year
  Sex: Female
  Weight: 78.47 kg

DRUGS (13)
  1. CLONIDINE. [Concomitant]
     Active Substance: CLONIDINE
  2. PLAVIX [Concomitant]
     Active Substance: CLOPIDOGREL BISULFATE
  3. LETAIRIS [Suspect]
     Active Substance: AMBRISENTAN
     Indication: PULMONARY ARTERIAL HYPERTENSION
     Route: 048
     Dates: start: 20081027
  4. HYDRALAZINE [Concomitant]
     Active Substance: HYDRALAZINE HYDROCHLORIDE
  5. COZAAR [Concomitant]
     Active Substance: LOSARTAN POTASSIUM
  6. METOPROLOL [Concomitant]
     Active Substance: METOPROLOL
  7. NEXIUM [Concomitant]
     Active Substance: ESOMEPRAZOLE MAGNESIUM
  8. VYTORIN [Concomitant]
     Active Substance: EZETIMIBE\SIMVASTATIN
  9. LASIX [Concomitant]
     Active Substance: FUROSEMIDE
  10. ISOSORBIDE. [Concomitant]
     Active Substance: ISOSORBIDE
  11. KLOR-CON [Concomitant]
     Active Substance: POTASSIUM CHLORIDE
  12. OSCAL [Concomitant]
     Active Substance: CALCIUM CARBONATE
  13. ASPIRIN. [Concomitant]
     Active Substance: ASPIRIN

REACTIONS (1)
  - Sinus congestion [Unknown]
